FAERS Safety Report 9441225 (Version 1)
Quarter: 2013Q3

REPORT INFORMATION
  Report Type: Spontaneous
  Country: US (occurrence: US)
  Receive Date: 20130805
  Receipt Date: 20130805
  Transmission Date: 20140515
  Serious: No
  Sender: FDA-Public Use
  Company Number: US-009507513-1308USA002036

PATIENT
  Age: 63 Year
  Sex: Male

DRUGS (5)
  1. JANUVIA [Suspect]
     Indication: TYPE 2 DIABETES MELLITUS
     Dosage: 100 MG TAKEN ONCE DAILY
     Route: 048
  2. CANAGLIFLOZIN [Suspect]
     Indication: DIABETES MELLITUS
  3. LIPITOR [Concomitant]
  4. LEVEMIR [Concomitant]
  5. GLUCOPHAGE XR [Concomitant]

REACTIONS (3)
  - Blood glucose abnormal [Unknown]
  - Weight decreased [Unknown]
  - Neuropathy peripheral [Unknown]
